FAERS Safety Report 23163445 (Version 1)
Quarter: 2023Q4

REPORT INFORMATION
  Report Type: Spontaneous
  Country: US (occurrence: US)
  Receive Date: 20231109
  Receipt Date: 20231109
  Transmission Date: 20240110
  Serious: No
  Sender: FDA-Public Use
  Company Number: US-INSMED, INC.-2022-03028-US

PATIENT
  Sex: Female

DRUGS (6)
  1. ARIKAYCE [Suspect]
     Active Substance: AMIKACIN
     Indication: Mycobacterial infection
     Dosage: 590 MILLIGRAM, QD
     Route: 055
     Dates: start: 20221007, end: 202210
  2. ARIKAYCE [Suspect]
     Active Substance: AMIKACIN
     Dosage: 590 MILLIGRAM, QOD
     Route: 055
     Dates: start: 202210, end: 2022
  3. ARIKAYCE [Suspect]
     Active Substance: AMIKACIN
     Dosage: 590 MILLIGRAM, FIVE DAYS A WEEK
     Route: 055
     Dates: start: 2022
  4. ARIKAYCE [Suspect]
     Active Substance: AMIKACIN
     Dosage: 590 MILLIGRAM, QD
     Route: 055
     Dates: end: 2023
  5. ARIKAYCE [Suspect]
     Active Substance: AMIKACIN
     Dosage: 590 MILLIGRAM, EVERY TWO TO THREE DAY
     Route: 055
     Dates: start: 2023, end: 2023
  6. ARIKAYCE [Suspect]
     Active Substance: AMIKACIN
     Dosage: 590 MILLIGRAM, TIW
     Route: 055
     Dates: start: 2023

REACTIONS (11)
  - Upper respiratory tract irritation [Not Recovered/Not Resolved]
  - Aphonia [Recovered/Resolved]
  - Aphonia [Unknown]
  - Throat irritation [Unknown]
  - Oropharyngeal pain [Unknown]
  - Dysphonia [Unknown]
  - Haemoptysis [Unknown]
  - Intentional dose omission [Unknown]
  - Product dose omission issue [Unknown]
  - Therapy interrupted [Unknown]
  - Off label use [Unknown]

NARRATIVE: CASE EVENT DATE: 20220101
